FAERS Safety Report 5035410-5 (Version None)
Quarter: 2006Q2

REPORT INFORMATION
  Report Type: 
  Country: None (occurrence: None)
  Receive Date: 20060622
  Receipt Date: 20060606
  Transmission Date: 20061013
  Serious: Yes (Hospitalization)
  Sender: FDA-Public Use
  Company Number: DSA_28305_2006

PATIENT
  Age: 45 Year
  Sex: Female

DRUGS (3)
  1. ENALAPRIL MALEATE AND HYDROCHLOROTHIAZIDE [Suspect]
     Indication: HYPERTENSION
     Dosage: DF Q DAY PO
     Route: 048
     Dates: start: 20060524, end: 20060528
  2. ENALAPRIL MALEATE AND HYDROCHLOROTHIAZIDE [Suspect]
     Indication: HYPERTENSION
     Dosage: DF Q DAY PO
     Route: 048
     Dates: start: 20060501
  3. METOPROLOL TARTRATE [Concomitant]

REACTIONS (3)
  - DRUG INEFFECTIVE [None]
  - HYPERTENSIVE CRISIS [None]
  - PHARMACEUTICAL PRODUCT COMPLAINT [None]
